FAERS Safety Report 4346448-5 (Version None)
Quarter: 2004Q2

REPORT INFORMATION
  Report Type: 
  Country: None (occurrence: None)
  Receive Date: 20040426
  Receipt Date: 20030212
  Transmission Date: 20050107
  Serious: No
  Sender: FDA-Public Use
  Company Number: US-BRISTOL-MYERS SQUIBB COMPANY-12188108

PATIENT
  Age: 48 Year
  Sex: Female

DRUGS (9)
  1. CARBOPLATIN [Suspect]
     Indication: OVARIAN CANCER
     Dosage: 600 OR 700 MG
     Route: 042
     Dates: start: 20021231, end: 20021231
  2. RESTORIL [Concomitant]
  3. TEMAZEPAM [Concomitant]
  4. TRAZODONE HCL [Concomitant]
  5. BUPROPION HCL [Concomitant]
  6. ZOFRAN [Concomitant]
  7. PROZAC [Concomitant]
  8. BUSPIRONE HCL [Concomitant]
  9. RANITIDINE [Concomitant]

REACTIONS (4)
  - CHEST DISCOMFORT [None]
  - DYSPNOEA [None]
  - FEELING HOT [None]
  - PRURITUS GENERALISED [None]
